FAERS Safety Report 4935485-5 (Version None)
Quarter: 2006Q1

REPORT INFORMATION
  Report Type: 
  Country: None (occurrence: None)
  Receive Date: 20060307
  Receipt Date: 20050817
  Transmission Date: 20060701
  Serious: No
  Sender: FDA-Public Use
  Company Number: US-GLAXOSMITHKLINE-A0570614A

PATIENT
  Age: 75 Year
  Sex: Male

DRUGS (2)
  1. REQUIP [Suspect]
     Indication: RESTLESS LEGS SYNDROME
     Dosage: 2TAB PER DAY
     Route: 048
     Dates: start: 20050815, end: 20050815
  2. SINEMET [Concomitant]

REACTIONS (1)
  - INSOMNIA [None]
